FAERS Safety Report 16939786 (Version 10)
Quarter: 2022Q2

REPORT INFORMATION
  Report Type: Spontaneous
  Country: BR (occurrence: BR)
  Receive Date: 20191021
  Receipt Date: 20220628
  Transmission Date: 20220720
  Serious: Yes (Other)
  Sender: FDA-Public Use
  Company Number: BR-GLAXOSMITHKLINE-BR2019AMR187717

PATIENT

DRUGS (3)
  1. NUCALA [Suspect]
     Active Substance: MEPOLIZUMAB
     Indication: Asthma
     Dosage: 100 MG/ML
     Route: 042
     Dates: start: 20190919
  2. PREDNISOLONE [Suspect]
     Active Substance: PREDNISOLONE
     Indication: Asthma
     Dosage: UNK, QD
  3. ALBUTEROL [Suspect]
     Active Substance: ALBUTEROL
     Indication: Asthma
     Dosage: UNK, QD, AT NIGHT

REACTIONS (11)
  - Asthmatic crisis [Unknown]
  - Rheumatoid arthritis [Unknown]
  - Wheezing [Unknown]
  - Dyspnoea [Not Recovered/Not Resolved]
  - Nervousness [Unknown]
  - General physical health deterioration [Unknown]
  - Product use issue [Unknown]
  - Product availability issue [Unknown]
  - Inappropriate schedule of product administration [Unknown]
  - Product dose omission issue [Unknown]
  - Social problem [Unknown]
